FAERS Safety Report 5153297-7 (Version None)
Quarter: 2006Q4

REPORT INFORMATION
  Report Type: 
  Country: None (occurrence: None)
  Receive Date: 20061117
  Receipt Date: 20061107
  Transmission Date: 20070319
  Serious: Yes (Other)
  Sender: FDA-Public Use
  Company Number: DE-SANOFI-SYNTHELABO-A04200601174

PATIENT
  Sex: Male
  Weight: 112 kg

DRUGS (7)
  1. ELOXATIN [Suspect]
     Indication: RECTAL CANCER
     Route: 041
     Dates: start: 20061023, end: 20061023
  2. METOCLOPRAMIDE [Concomitant]
     Indication: DRUG USE FOR UNKNOWN INDICATION
     Dosage: AS NEEDED
     Route: 048
     Dates: start: 20060101
  3. ZOFRAN [Concomitant]
     Indication: PREMEDICATION
     Route: 048
     Dates: start: 20061023, end: 20061024
  4. ZOFRAN [Concomitant]
     Route: 041
     Dates: start: 20061023, end: 20061023
  5. TEGRETOL [Concomitant]
     Indication: EPILEPSY
     Dosage: 1600 MG
     Route: 048
     Dates: start: 19860101
  6. LEUCOVORIN CALCIUM [Suspect]
     Indication: RECTAL CANCER
     Route: 041
     Dates: start: 20061023, end: 20061023
  7. FLUOROURACIL [Suspect]
     Indication: RECTAL CANCER
     Route: 041
     Dates: start: 20061023, end: 20061023

REACTIONS (1)
  - EPILEPSY [None]
